FAERS Safety Report 6912651-0 (Version None)
Quarter: 2010Q3

REPORT INFORMATION
  Report Type: 
  Country: None (occurrence: None)
  Receive Date: 20100806
  Receipt Date: 20080919
  Transmission Date: 20110219
  Serious: No
  Sender: FDA-Public Use
  Company Number: US-PFIZER INC-2008030485

PATIENT
  Sex: Male
  Weight: 89.81 kg

DRUGS (4)
  1. LOPID [Suspect]
     Indication: BLOOD TRIGLYCERIDES INCREASED
     Dates: start: 20060101
  2. LIPITOR [Concomitant]
  3. LOPERAMIDE HYDROCHLORIDE [Concomitant]
  4. KAOPECTATE [Concomitant]

REACTIONS (1)
  - DIARRHOEA [None]
